FAERS Safety Report 14922447 (Version 3)
Quarter: 2018Q4

REPORT INFORMATION
  Report Type: Spontaneous
  Country: US (occurrence: US)
  Receive Date: 20180522
  Receipt Date: 20181126
  Transmission Date: 20190204
  Serious: No
  Sender: FDA-Public Use
  Company Number: US-PFIZER INC-2018207091

PATIENT
  Age: 57 Year
  Sex: Female
  Weight: 44 kg

DRUGS (2)
  1. IBRANCE [Suspect]
     Active Substance: PALBOCICLIB
     Indication: BREAST CANCER FEMALE
     Dosage: 100 MG, CYCLIC (DAILY D1-21-Q28 DAYS)
     Route: 048
  2. IBRANCE [Suspect]
     Active Substance: PALBOCICLIB
     Dosage: 75 MG, CYCLIC; (DAY 1-21 Q28 DAYS)
     Route: 048
     Dates: start: 201709

REACTIONS (8)
  - Fatigue [Unknown]
  - Urinary tract infection [Unknown]
  - Nausea [Unknown]
  - Abdominal discomfort [Unknown]
  - Liver function test increased [Unknown]
  - Vomiting [Unknown]
  - Cough [Unknown]
  - Malaise [Unknown]
